FAERS Safety Report 10311952 (Version 1)
Quarter: 2014Q3

REPORT INFORMATION
  Report Type: Spontaneous
  Country: US (occurrence: None)
  Receive Date: 20140715
  Receipt Date: 20140715
  Transmission Date: 20150326
  Serious: Yes (Other)
  Sender: FDA-Public Use
  Company Number: 2014AP003598

PATIENT
  Sex: Male

DRUGS (2)
  1. PAXIL [Suspect]
     Active Substance: PAROXETINE HYDROCHLORIDE
     Indication: NIGHTMARE
     Dosage: UNK
     Dates: end: 2013
  2. PAXIL [Suspect]
     Active Substance: PAROXETINE HYDROCHLORIDE
     Indication: PANIC ATTACK
     Dosage: UNK
     Dates: end: 2013

REACTIONS (11)
  - Ill-defined disorder [None]
  - Apathy [None]
  - Feeling abnormal [None]
  - Partner stress [None]
  - Suicidal ideation [None]
  - Loss of employment [None]
  - Paraesthesia [None]
  - Drug withdrawal syndrome [None]
  - Sexual dysfunction [None]
  - Polydipsia [None]
  - Quality of life decreased [None]
